FAERS Safety Report 4582916-9 (Version None)
Quarter: 2005Q1

REPORT INFORMATION
  Report Type: 
  Country: None (occurrence: None)
  Receive Date: 20050127
  Receipt Date: 20041027
  Transmission Date: 20050727
  Serious: No
  Sender: FDA-Public Use
  Company Number: USA040978317

PATIENT
  Age: 8 Year
  Sex: Female
  Weight: 32 kg

DRUGS (2)
  1. ZYPREXA [Suspect]
     Dates: start: 20040501
  2. STRATTERA [Suspect]
     Dates: start: 20030501

REACTIONS (2)
  - DRUG INTERACTION [None]
  - HYPERACUSIS [None]
